FAERS Safety Report 11455589 (Version 1)
Quarter: 2015Q3

REPORT INFORMATION
  Report Type: Spontaneous
  Country: US (occurrence: US)
  Receive Date: 20150903
  Receipt Date: 20150903
  Transmission Date: 20151125
  Serious: Yes (Hospitalization)
  Sender: FDA-Public Use
  Company Number: US-BEH-2014044167

PATIENT
  Age: 57 Year
  Sex: Female
  Weight: 76 kg

DRUGS (23)
  1. NORMAL SALINE [Concomitant]
     Active Substance: SODIUM CHLORIDE
  2. SODIUM CHLORIDE. [Concomitant]
     Active Substance: SODIUM CHLORIDE
  3. PANTOPRAZOLE [Concomitant]
     Active Substance: PANTOPRAZOLE SODIUM
  4. LEVALBUTEROL. [Concomitant]
     Active Substance: LEVALBUTEROL
  5. DALIRESP [Concomitant]
     Active Substance: ROFLUMILAST
  6. CARDIZEM [Concomitant]
     Active Substance: DILTIAZEM HYDROCHLORIDE
  7. ZEMAIRA [Suspect]
     Active Substance: .ALPHA.1-PROTEINASE INHIBITOR HUMAN
     Indication: HEREDITARY ANGIOEDEMA
     Dosage: 993 MG VIAL;MAXIMUM RATE=0.08 ML/KG/MIN (6.2 ML/MIN)
     Route: 042
  8. EPIPEN [Concomitant]
     Active Substance: EPINEPHRINE
  9. IPRATROPIUM [Concomitant]
     Active Substance: IPRATROPIUM
  10. ZEMAIRA [Suspect]
     Active Substance: .ALPHA.1-PROTEINASE INHIBITOR HUMAN
     Indication: IMMUNE SYSTEM DISORDER
     Dosage: 993 MG VIAL;MAXIMUM RATE=0.08 ML/KG/MIN (6.2 ML/MIN)
     Route: 042
  11. OXYGEN. [Concomitant]
     Active Substance: OXYGEN
  12. CIPRO [Concomitant]
     Active Substance: CIPROFLOXACIN HYDROCHLORIDE
  13. DIGOXIN. [Concomitant]
     Active Substance: DIGOXIN
  14. LMX [Concomitant]
     Active Substance: LIDOCAINE
  15. PREDNISONE. [Concomitant]
     Active Substance: PREDNISONE
  16. LEVAQUIN [Concomitant]
     Active Substance: LEVOFLOXACIN
  17. BUDESONIDE. [Concomitant]
     Active Substance: BUDESONIDE
  18. VITAMIN B [Concomitant]
     Active Substance: VITAMIN B
  19. SINGULAIR [Concomitant]
     Active Substance: MONTELUKAST SODIUM
  20. ZEMAIRA [Suspect]
     Active Substance: .ALPHA.1-PROTEINASE INHIBITOR HUMAN
     Indication: BACTERAEMIA
     Dosage: 993 MG VIAL;MAXIMUM RATE=0.08 ML/KG/MIN (6.2 ML/MIN)
     Route: 042
  21. DIPHENHYDRAMINE. [Concomitant]
     Active Substance: DIPHENHYDRAMINE
  22. XANAX [Concomitant]
     Active Substance: ALPRAZOLAM
  23. PERFOROMIST [Concomitant]
     Active Substance: FORMOTEROL FUMARATE DIHYDRATE

REACTIONS (1)
  - Dyspnoea [Unknown]

NARRATIVE: CASE EVENT DATE: 20140717
